FAERS Safety Report 8923860 (Version 3)
Quarter: 2014Q4

REPORT INFORMATION
  Report Type: Report from Study
  Country: US (occurrence: US)
  Receive Date: 20121127
  Receipt Date: 20141201
  Transmission Date: 20150529
  Serious: Yes (Death, Hospitalization, Other)
  Sender: FDA-Public Use
  Company Number: US-TEVA-371485USA

PATIENT
  Sex: Male
  Weight: 84.9 kg

DRUGS (18)
  1. DOXORUBICIN [Suspect]
     Active Substance: DOXORUBICIN
     Dosage: CYCLIC-75MG/M2 (153MG TOTAL DOSE)
     Route: 040
     Dates: start: 20121031
  2. ACETAMINOPHEN. [Concomitant]
     Active Substance: ACETAMINOPHEN
     Dates: start: 20121024
  3. OXYCODONE [Concomitant]
     Active Substance: OXYCODONE
     Dates: start: 20121010
  4. OMEPRAZOLE. [Concomitant]
     Active Substance: OMEPRAZOLE
     Dates: start: 20120827
  5. HYDROCORTISONE. [Concomitant]
     Active Substance: HYDROCORTISONE
     Dates: start: 20121024
  6. HYDROMORPHONE [Concomitant]
     Active Substance: HYDROMORPHONE
     Dates: start: 20121024
  7. OXYCONTIN [Concomitant]
     Active Substance: OXYCODONE HYDROCHLORIDE
     Dates: start: 20121001
  8. DOXORUBICIN [Suspect]
     Active Substance: DOXORUBICIN
     Indication: SARCOMA METASTATIC
     Dosage: 75 MG/M2, TOTAL DOSE 153 MG, BOLUS, CYCLE 3
     Route: 040
     Dates: start: 20120919
  9. TH-302 [Suspect]
     Active Substance: EVOFOSFAMIDE
     Dosage: CYCLIC-300MG/M2 (612MG TOTAL DOSE)
     Route: 042
     Dates: start: 20121107
  10. ONDANSETRON [Concomitant]
     Active Substance: ONDANSETRON
     Dates: start: 20121001
  11. VALSARTAN. [Concomitant]
     Active Substance: VALSARTAN
     Dates: start: 20120827
  12. TH-302 [Suspect]
     Active Substance: EVOFOSFAMIDE
     Indication: SARCOMA METASTATIC
     Dosage: CYCLIC
     Route: 042
     Dates: start: 20120919
  13. DOCUSATE [Concomitant]
     Active Substance: DOCUSATE
     Dates: start: 20120827
  14. PEGFILGRASTIM [Concomitant]
     Active Substance: PEGFILGRASTIM
     Dates: start: 20121107, end: 20121107
  15. DIPHENHYDRAMINE [Concomitant]
     Active Substance: DIPHENHYDRAMINE
     Dates: start: 20121024
  16. LIDOCAINE. [Concomitant]
     Active Substance: LIDOCAINE
     Dates: start: 20121001
  17. PROMETHAZINE [Concomitant]
     Active Substance: PROMETHAZINE\PROMETHAZINE HYDROCHLORIDE
     Dates: start: 20120912
  18. CETIRIZINE [Concomitant]
     Active Substance: CETIRIZINE HYDROCHLORIDE
     Dates: start: 20120827

REACTIONS (1)
  - Septic shock [Fatal]
